FAERS Safety Report 7018069-7 (Version None)
Quarter: 2010Q3

REPORT INFORMATION
  Report Type: 
  Country: None (occurrence: None)
  Receive Date: 20100928
  Receipt Date: 20100921
  Transmission Date: 20110219
  Serious: Yes (Other)
  Sender: FDA-Public Use
  Company Number: PHEH2007US01384

PATIENT
  Sex: Female

DRUGS (2)
  1. ZELNORM [Suspect]
     Indication: IRRITABLE BOWEL SYNDROME
     Dosage: 6 MG, BID
     Route: 048
     Dates: start: 20020101, end: 20070126
  2. SYNTHROID [Concomitant]
     Indication: THYROID DISORDER

REACTIONS (14)
  - ABDOMINAL DISTENSION [None]
  - CARDIAC DISORDER [None]
  - CHOLECYSTECTOMY [None]
  - DIARRHOEA [None]
  - DIZZINESS [None]
  - DYSPNOEA [None]
  - GASTROOESOPHAGEAL REFLUX DISEASE [None]
  - HEADACHE [None]
  - HYPERTENSION [None]
  - HYSTERECTOMY [None]
  - MIGRAINE [None]
  - OESOPHAGEAL OPERATION [None]
  - PARAESTHESIA [None]
  - STOMATITIS [None]
